FAERS Safety Report 12397888 (Version 1)
Quarter: 2016Q2

REPORT INFORMATION
  Report Type: Spontaneous
  Country: US (occurrence: US)
  Receive Date: 20160524
  Receipt Date: 20160524
  Transmission Date: 20160815
  Serious: Yes (Hospitalization, Other)
  Sender: FDA-Public Use
  Company Number: US-MDT-ADR-2015-02399

PATIENT
  Age: 59 Year
  Sex: Male

DRUGS (5)
  1. ATIVAN [Suspect]
     Active Substance: LORAZEPAM
  2. TRAZODONE [Suspect]
     Active Substance: TRAZODONE HYDROCHLORIDE
  3. DILAUDID [Suspect]
     Active Substance: HYDROMORPHONE HYDROCHLORIDE
     Dosage: 74.98 MCG/DAY
     Route: 037
  4. ATIVAN [Suspect]
     Active Substance: LORAZEPAM
  5. BACOFEN [Suspect]
     Active Substance: BACLOFEN
     Dosage: 74.98 MCG/DAY
     Route: 037

REACTIONS (6)
  - Hypotension [Unknown]
  - Abnormal behaviour [Unknown]
  - Renal failure [Unknown]
  - Pneumonia [Unknown]
  - Hyporesponsive to stimuli [Unknown]
  - Somnolence [Unknown]

NARRATIVE: CASE EVENT DATE: 20151208
